FAERS Safety Report 20018602 (Version 1)
Quarter: 2021Q4

REPORT INFORMATION
  Report Type: Spontaneous
  Country: DE (occurrence: DE)
  Receive Date: 20211101
  Receipt Date: 20211101
  Transmission Date: 20220303
  Serious: Yes (Death)
  Sender: FDA-Public Use
  Company Number: DE-002147023-PHHY2019DE155243

PATIENT
  Sex: Female
  Weight: 48 kg

DRUGS (6)
  1. LETROZOLE [Suspect]
     Active Substance: LETROZOLE
     Indication: Breast cancer metastatic
     Dosage: 2.5 OT, QD
     Route: 048
     Dates: start: 20190301
  2. KISQALI [Suspect]
     Active Substance: RIBOCICLIB
     Indication: Breast cancer metastatic
     Dosage: 600 MG (SCHEME 21 DAYS INTAKE, 7 DAYS PAUSE)
     Route: 048
     Dates: start: 20190304
  3. CALCIUM [Concomitant]
     Active Substance: CALCIUM
     Indication: Product used for unknown indication
     Dosage: UNK
     Route: 065
  4. VITAMIN D [Concomitant]
     Active Substance: VITAMIN D NOS
     Indication: Product used for unknown indication
     Dosage: UNK
     Route: 065
     Dates: start: 20190218
  5. XGEVA [Concomitant]
     Active Substance: DENOSUMAB
     Indication: Breast cancer metastatic
     Dosage: 120 OT
     Route: 058
     Dates: start: 201901
  6. XGEVA [Concomitant]
     Active Substance: DENOSUMAB
     Dosage: 120 OT
     Route: 058
     Dates: start: 20190218, end: 201906

REACTIONS (5)
  - Gamma-glutamyltransferase increased [Fatal]
  - Metastases to liver [Fatal]
  - Hepatic failure [Fatal]
  - Concomitant disease progression [Fatal]
  - Therapeutic response decreased [Unknown]

NARRATIVE: CASE EVENT DATE: 20190429
